FAERS Safety Report 10037863 (Version 1)
Quarter: 2014Q1

REPORT INFORMATION
  Report Type: Spontaneous
  Country: US (occurrence: US)
  Receive Date: 20140326
  Receipt Date: 20140326
  Transmission Date: 20141002
  Serious: Yes (Other)
  Sender: FDA-Public Use
  Company Number: US-AMGEN-USASP2014020011

PATIENT
  Age: 79 Year
  Sex: Female

DRUGS (6)
  1. PROLIA [Suspect]
     Indication: OSTEOPOROSIS POSTMENOPAUSAL
     Dosage: UNK
     Route: 058
     Dates: start: 201210
  2. VYTORIN [Concomitant]
  3. CALCIUM [Concomitant]
  4. BABY ASPIRIN [Concomitant]
  5. VITAMIN D                          /00107901/ [Concomitant]
  6. FORTEO [Concomitant]
     Dosage: UNK
     Dates: start: 201305

REACTIONS (9)
  - Urinary tract infection [Recovered/Resolved]
  - Blood urine present [Unknown]
  - Furuncle [Unknown]
  - Local swelling [Unknown]
  - Skin exfoliation [Unknown]
  - Secretion discharge [Unknown]
  - Pruritus [Unknown]
  - Rash [Recovered/Resolved]
  - Erythema [Unknown]
